FAERS Safety Report 15918343 (Version 1)
Quarter: 2019Q1

REPORT INFORMATION
  Report Type: Spontaneous
  Country: IN (occurrence: IN)
  Receive Date: 20190205
  Receipt Date: 20190205
  Transmission Date: 20190417
  Serious: Yes (Hospitalization)
  Sender: FDA-Public Use
  Company Number: IN-MYLANLABS-2019M1008382

PATIENT
  Age: 41 Year
  Sex: Male
  Weight: 76 kg

DRUGS (8)
  1. ISOFLURANE. [Concomitant]
     Active Substance: ISOFLURANE
     Indication: MAINTENANCE OF ANAESTHESIA
     Route: 065
  2. ATRACURIUM [Concomitant]
     Active Substance: ATRACURIUM
     Indication: MAINTENANCE OF ANAESTHESIA
     Route: 050
  3. ROCURONIUM [Concomitant]
     Active Substance: ROCURONIUM BROMIDE
     Route: 042
  4. FUROSEMIDE. [Concomitant]
     Active Substance: FUROSEMIDE
     Indication: ASCITES
     Route: 065
  5. FENTANYL. [Concomitant]
     Active Substance: FENTANYL
     Indication: GENERAL ANAESTHESIA
     Route: 042
  6. METOPROLOL. [Suspect]
     Active Substance: METOPROLOL
     Indication: ASCITES
     Route: 065
  7. PROPOFOL. [Concomitant]
     Active Substance: PROPOFOL
     Indication: GENERAL ANAESTHESIA
     Route: 042
  8. FENTANYL. [Concomitant]
     Active Substance: FENTANYL
     Indication: MAINTENANCE OF ANAESTHESIA
     Route: 050

REACTIONS (3)
  - Encapsulating peritoneal sclerosis [Recovering/Resolving]
  - Haemorrhage [Recovering/Resolving]
  - Collateral circulation [Recovering/Resolving]
